FAERS Safety Report 4341685-8 (Version None)
Quarter: 2004Q2

REPORT INFORMATION
  Report Type: 
  Country: None (occurrence: None)
  Receive Date: 20040415
  Receipt Date: 20040405
  Transmission Date: 20050107
  Serious: Yes (Hospitalization, Disabling)
  Sender: FDA-Public Use
  Company Number: DE_040413352

PATIENT
  Age: 78 Year
  Sex: Female

DRUGS (11)
  1. ZYPREXA [Suspect]
     Indication: DEMENTIA ALZHEIMER'S TYPE
     Dosage: 5 MG DAY
     Dates: start: 20021201, end: 20031207
  2. ZYPREXA [Suspect]
     Indication: PSYCHOTIC DISORDER
     Dosage: 5 MG DAY
     Dates: start: 20021201, end: 20031207
  3. ZYPREXA [Suspect]
     Indication: RESTLESSNESS
     Dosage: 5 MG DAY
     Dates: start: 20021201, end: 20031207
  4. PIPAMPERONE [Concomitant]
  5. HALOPERIDOL [Concomitant]
  6. CLOMETHIAZOLE [Concomitant]
  7. CHLORPROTHIXENE [Concomitant]
  8. LORAZEPAM [Concomitant]
  9. FUROSEMIDE [Concomitant]
  10. KALINOR (POTASSIUM CHLORIDE) [Concomitant]
  11. CALCIUM [Concomitant]

REACTIONS (13)
  - ABASIA [None]
  - ACTIVITIES OF DAILY LIVING IMPAIRED [None]
  - BRAIN STEM ISCHAEMIA [None]
  - CEREBRAL ATROPHY [None]
  - CONDITION AGGRAVATED [None]
  - DEMENTIA [None]
  - DYSSTASIA [None]
  - GENERAL PHYSICAL CONDITION ABNORMAL [None]
  - IIIRD NERVE PARESIS [None]
  - MOVEMENT DISORDER [None]
  - NERVOUS SYSTEM DISORDER [None]
  - PARAPARESIS [None]
  - SPEECH DISORDER [None]
